FAERS Safety Report 4422157-9 (Version None)
Quarter: 2004Q3

REPORT INFORMATION
  Report Type: 
  Country: None (occurrence: None)
  Receive Date: 20040712
  Receipt Date: 20030916
  Transmission Date: 20050211
  Serious: No
  Sender: FDA-Public Use
  Company Number: TAP2003Q02147

PATIENT
  Sex: Male

DRUGS (1)
  1. PREVACID [Suspect]
     Indication: GASTROOESOPHAGEAL REFLUX DISEASE
     Dosage: 30 MG, 1 PER DAY INTERMITTENTLY; ORAL
     Route: 048
     Dates: start: 20030823, end: 20030906

REACTIONS (5)
  - ANAPHYLACTOID REACTION [None]
  - DIARRHOEA [None]
  - NAUSEA [None]
  - PRURITUS GENERALISED [None]
  - URTICARIA [None]
